FAERS Safety Report 6533907-X (Version None)
Quarter: 2010Q1

REPORT INFORMATION
  Report Type: 
  Country: None (occurrence: None)
  Receive Date: 20100111
  Receipt Date: 20091007
  Transmission Date: 20100710
  Serious: No
  Sender: FDA-Public Use
  Company Number: US-ABBOTT-09P-163-0602211-00

PATIENT
  Sex: Female
  Weight: 65.376 kg

DRUGS (3)
  1. VICODIN [Suspect]
     Indication: OSTEOARTHRITIS
     Dates: start: 20090601
  2. SYNTHROID [Concomitant]
     Indication: DRUG USE FOR UNKNOWN INDICATION
  3. XANAX [Concomitant]
     Indication: DRUG USE FOR UNKNOWN INDICATION

REACTIONS (2)
  - INSOMNIA [None]
  - PRURITUS [None]
